FAERS Safety Report 5483547-9 (Version None)
Quarter: 2007Q4

REPORT INFORMATION
  Report Type: 
  Country: None (occurrence: None)
  Receive Date: 20071010
  Receipt Date: 20071010
  Transmission Date: 20080405
  Serious: No
  Sender: FDA-Public Use
  Company Number: None

PATIENT
  Age: 47 Year
  Sex: Male
  Weight: 85.2762 kg

DRUGS (2)
  1. AVELOX [Suspect]
     Indication: SINUSITIS
     Dosage: 1 A DAY PO
     Route: 048
     Dates: start: 20071003, end: 20071003
  2. AVELOX [Suspect]
     Indication: SINUSITIS
     Dosage: 1 A DAY PO
     Route: 048
     Dates: start: 20071001, end: 20071003

REACTIONS (10)
  - APHASIA [None]
  - DOCUMENTED HYPERSENSITIVITY TO ADMINISTERED DRUG [None]
  - FEELING ABNORMAL [None]
  - HALLUCINATION, VISUAL [None]
  - PHOTOPSIA [None]
  - RETINAL DETACHMENT [None]
  - VISION BLURRED [None]
  - VISUAL ACUITY REDUCED [None]
  - VISUAL FIELD DEFECT [None]
  - VITREOUS FLOATERS [None]
